FAERS Safety Report 21658214 (Version 1)
Quarter: 2022Q4

REPORT INFORMATION
  Report Type: Report from Study
  Country: US (occurrence: US)
  Receive Date: 20221129
  Receipt Date: 20221129
  Transmission Date: 20230112
  Serious: No
  Sender: FDA-Public Use
  Company Number: US-ABBVIE-4163663

PATIENT
  Sex: Female

DRUGS (1)
  1. HUMIRA [Suspect]
     Active Substance: ADALIMUMAB
     Indication: Hidradenitis
     Dosage: FORM STRENGTH 40 MG
     Route: 058

REACTIONS (4)
  - Oropharyngeal pain [Unknown]
  - Nasopharyngitis [Unknown]
  - Paranasal sinus discomfort [Unknown]
  - Respiratory tract congestion [Unknown]
